FAERS Safety Report 6385222-5 (Version None)
Quarter: 2009Q4

REPORT INFORMATION
  Report Type: 
  Country: None (occurrence: None)
  Receive Date: 20091002
  Receipt Date: 20080728
  Transmission Date: 20100525
  Serious: Yes (Other)
  Sender: FDA-Public Use
  Company Number: US-ASTRAZENECA-2008UW04150

PATIENT
  Age: 681 Month
  Sex: Female
  Weight: 65.8 kg

DRUGS (8)
  1. ARIMIDEX [Suspect]
     Indication: BREAST CANCER STAGE I
     Route: 048
     Dates: start: 20080225, end: 20080711
  2. ARIMIDEX [Suspect]
     Route: 048
  3. NAPROXEN [Concomitant]
  4. SINEMET [Concomitant]
  5. CALTRATE [Concomitant]
  6. REQUIP [Concomitant]
  7. SYNTHROID [Concomitant]
  8. LISINOPRIL [Concomitant]

REACTIONS (2)
  - MOOD ALTERED [None]
  - TUMOUR MARKER INCREASED [None]
